FAERS Safety Report 8095033-0 (Version None)
Quarter: 2012Q1

REPORT INFORMATION
  Report Type: 
  Country: None (occurrence: None)
  Receive Date: 20120131
  Receipt Date: 20120131
  Transmission Date: 20120608
  Serious: Yes (Other)
  Sender: FDA-Public Use
  Company Number: None

PATIENT
  Age: 68 Year
  Sex: Male

DRUGS (1)
  1. ENBREL [Suspect]
     Indication: RHEUMATOID ARTHRITIS
     Dosage: 50.0 MG
     Route: 058
     Dates: start: 20110929, end: 20120128

REACTIONS (2)
  - RADIOTHERAPY [None]
  - PROSTATE CANCER [None]
